FAERS Safety Report 4365088-5 (Version None)
Quarter: 2004Q2

REPORT INFORMATION
  Report Type: 
  Country: None (occurrence: None)
  Receive Date: 20040520
  Receipt Date: 20040511
  Transmission Date: 20050107
  Serious: Yes (Hospitalization)
  Sender: FDA-Public Use
  Company Number: ENT-2004-0096

PATIENT
  Age: 81 Year
  Sex: Female

DRUGS (2)
  1. COMTESS (ENTACAPONE) [Suspect]
     Indication: PARKINSON'S DISEASE
     Dosage: 800 MG; ORAL
     Route: 048
     Dates: start: 20030101, end: 20040428
  2. NACOM 200 [Suspect]
     Indication: PARKINSON'S DISEASE
     Dosage: 800 MG; ORAL
     Route: 048
     Dates: start: 20020101

REACTIONS (2)
  - AKINESIA [None]
  - BLOOD CREATINE PHOSPHOKINASE INCREASED [None]
